FAERS Safety Report 8248624 (Version 2)
Quarter: 2013Q3

REPORT INFORMATION
  Report Type: Spontaneous
  Country: US (occurrence: US)
  Receive Date: 20111117
  Receipt Date: 20130912
  Transmission Date: 20140515
  Serious: Yes (Congenital Anomaly, Other)
  Sender: FDA-Public Use
  Company Number: US-PFIZER INC-2011279466

PATIENT
  Sex: Female

DRUGS (2)
  1. ZOLOFT [Suspect]
     Indication: DEPRESSION
     Dosage: UNK
     Route: 064
     Dates: start: 200811
  2. SERTRALINE HCL [Suspect]
     Indication: DEPRESSION
     Dosage: UNK
     Route: 064
     Dates: start: 200811

REACTIONS (9)
  - Maternal exposure timing unspecified [Unknown]
  - Pulmonary valve stenosis [Unknown]
  - Gross motor delay [Unknown]
  - Atrial septal defect [Unknown]
  - Speech disorder developmental [Unknown]
  - Fine motor delay [Unknown]
  - Hypotonia [Unknown]
  - Gastrooesophageal reflux disease [Unknown]
  - Ear infection [Unknown]
